FAERS Safety Report 5805328-6 (Version None)
Quarter: 2008Q3

REPORT INFORMATION
  Report Type: 
  Country: None (occurrence: None)
  Receive Date: 20080709
  Receipt Date: 20080702
  Transmission Date: 20090109
  Serious: Yes (Death, Other)
  Sender: FDA-Public Use
  Company Number: US-ELI_LILLY_AND_COMPANY-US200711001577

PATIENT
  Sex: Female

DRUGS (7)
  1. HUMALOG [Suspect]
     Dosage: UNK, UNK
     Route: 064
     Dates: start: 20070207
  2. HUMULIN N [Suspect]
     Indication: TYPE 2 DIABETES MELLITUS
     Dosage: UNK, UNK
     Route: 064
     Dates: start: 20070207
  3. HUMULIN N [Suspect]
     Dosage: 25 U, DAILY (1/D)
     Dates: start: 20070701
  4. PRENATAL VITAMINS /01549301/ [Concomitant]
     Dosage: 1 UNK, DAILY (1/D)
     Dates: start: 20061001
  5. FOLIC ACID [Concomitant]
     Dosage: 0.8 MG, DAILY (1/D)
  6. ASPIRIN [Concomitant]
     Dosage: 81 MG, DAILY (1/D)
     Dates: start: 20070308
  7. LOVENOX [Concomitant]
     Indication: COAGULOPATHY
     Dosage: 80 MG, UNK
     Dates: start: 20070308, end: 20070622

REACTIONS (6)
  - ANAEMIA [None]
  - DEATH NEONATAL [None]
  - DRUG EXPOSURE DURING PREGNANCY [None]
  - FOETAL HYPOKINESIA [None]
  - OEDEMA NEONATAL [None]
  - UNRESPONSIVE TO STIMULI [None]
